FAERS Safety Report 5155568-7 (Version None)
Quarter: 2006Q4

REPORT INFORMATION
  Report Type: 
  Country: None (occurrence: None)
  Receive Date: 20061114
  Receipt Date: 20061102
  Transmission Date: 20070319
  Serious: Yes (Hospitalization)
  Sender: FDA-Public Use
  Company Number: HQWYE346103NOV06

PATIENT
  Age: 23 Year
  Sex: Male

DRUGS (9)
  1. RAPAMUNE [Suspect]
     Indication: RENAL TRANSPLANT
     Dosage: 3 MG 1X PER 1 DAY, ORAL
     Route: 048
     Dates: start: 20040101
  2. LIPITOR [Concomitant]
  3. CALCITRIOL [Concomitant]
  4. DEPAKOTE [Concomitant]
  5. FLECAINIDE ACETATE [Concomitant]
  6. MIRTAZAPINE [Concomitant]
  7. CELLCEPT [Concomitant]
  8. PREDNISONE TAB [Concomitant]
  9. COUMADIN [Concomitant]

REACTIONS (1)
  - MIGRAINE [None]
